FAERS Safety Report 4296718-4 (Version None)
Quarter: 2004Q1

REPORT INFORMATION
  Report Type: 
  Country: None (occurrence: None)
  Receive Date: 20040126
  Receipt Date: 20031001
  Transmission Date: 20041129
  Serious: No
  Sender: FDA-Public Use
  Company Number: USA030742040

PATIENT
  Age: 15 Year
  Sex: Male
  Weight: 51 kg

DRUGS (2)
  1. STRATTERA [Suspect]
     Indication: ATTENTION DEFICIT/HYPERACTIVITY DISORDER
     Dosage: 60 MG/DAY
     Dates: start: 20030715
  2. DEPAKOTE [Concomitant]

REACTIONS (6)
  - ANGER [None]
  - CONCUSSION [None]
  - DISTURBANCE IN ATTENTION [None]
  - DRUG INEFFECTIVE [None]
  - INJURY [None]
  - SOMNOLENCE [None]
